FAERS Safety Report 12838033 (Version 1)
Quarter: 2016Q4

REPORT INFORMATION
  Report Type: Spontaneous
  Country: US (occurrence: US)
  Receive Date: 20161012
  Receipt Date: 20161012
  Transmission Date: 20170207
  Serious: No
  Sender: FDA-Public Use
  Company Number: US-009507513-1610USA003626

PATIENT
  Age: 77 Year
  Sex: Female

DRUGS (6)
  1. PLAVIX [Concomitant]
     Active Substance: CLOPIDOGREL BISULFATE
  2. FENOFIBRATE. [Concomitant]
     Active Substance: FENOFIBRATE
  3. METOPROLOL. [Concomitant]
     Active Substance: METOPROLOL
  4. PRINIVIL [Concomitant]
     Active Substance: LISINOPRIL
  5. BELSOMRA [Suspect]
     Active Substance: SUVOREXANT
     Indication: INSOMNIA
     Dosage: 5 MG, QD
     Route: 048
  6. ZOCOR [Concomitant]
     Active Substance: SIMVASTATIN

REACTIONS (2)
  - Feeling abnormal [Unknown]
  - Palpitations [Unknown]
